FAERS Safety Report 6983566-7 (Version None)
Quarter: 2010Q3

REPORT INFORMATION
  Report Type: 
  Country: None (occurrence: None)
  Receive Date: 20100914
  Receipt Date: 20080808
  Transmission Date: 20110219
  Serious: No
  Sender: FDA-Public Use
  Company Number: US-WYE-H05824608

PATIENT
  Age: 43 Year
  Sex: Male
  Weight: 86.71 kg

DRUGS (5)
  1. TYGACIL [Suspect]
     Indication: DIVERTICULITIS
     Route: 042
     Dates: start: 20080226, end: 20080313
  2. TYGACIL [Suspect]
     Indication: PELVIC ABSCESS
  3. IBUPROFEN [Concomitant]
  4. BENADRYL [Concomitant]
  5. DIFLUCAN [Concomitant]

REACTIONS (2)
  - BURNING SENSATION [None]
  - PARAESTHESIA [None]
